FAERS Safety Report 18290855 (Version 1)
Quarter: 2020Q3

REPORT INFORMATION
  Report Type: Other
  Country: DE (occurrence: DE)
  Receive Date: 20200921
  Receipt Date: 20200921
  Transmission Date: 20201103
  Serious: Yes (Other)
  Sender: FDA-Public Use
  Company Number: DE-B.BRAUN MEDICAL INC.-2090987

PATIENT
  Age: 81 Year
  Sex: Female

DRUGS (6)
  1. LIDOCAINE HYDROCHLORIDE AND DEXTROSE [Suspect]
     Active Substance: DEXTROSE\LIDOCAINE HYDROCHLORIDE
  2. AVASTIN [Concomitant]
     Active Substance: BEVACIZUMAB
  3. TROPICAMIDE. [Concomitant]
     Active Substance: TROPICAMIDE
  4. NEOMYCIN. [Concomitant]
     Active Substance: NEOMYCIN
  5. DEXAMETHASONE. [Concomitant]
     Active Substance: DEXAMETHASONE
  6. POLYMIXIN?B [Concomitant]
     Active Substance: POLYMYXIN B

REACTIONS (1)
  - Myasthenia gravis [Recovered/Resolved]
